FAERS Safety Report 6770866-9 (Version None)
Quarter: 2010Q2

REPORT INFORMATION
  Report Type: 
  Country: None (occurrence: None)
  Receive Date: 20100614
  Receipt Date: 20100604
  Transmission Date: 20101027
  Serious: Yes (Disabling)
  Sender: FDA-Public Use
  Company Number: OSCN-NO-1006S-0157

PATIENT
  Age: 38 Year
  Sex: Female

DRUGS (1)
  1. OMNISCAN [Suspect]
     Indication: PITUITARY CYST
     Dosage: SINGLE DOSE
     Dates: start: 20070101, end: 20070101

REACTIONS (2)
  - ACTIVITIES OF DAILY LIVING IMPAIRED [None]
  - NEPHROGENIC SYSTEMIC FIBROSIS [None]
